FAERS Safety Report 14398623 (Version 2)
Quarter: 2018Q1

REPORT INFORMATION
  Report Type: Report from Study
  Country: None (occurrence: CA)
  Receive Date: 20180117
  Receipt Date: 20180127
  Transmission Date: 20180509
  Serious: Yes (Hospitalization, Other)
  Sender: FDA-Public Use
  Company Number: CA-ABBVIE-17K-028-2182798-00

PATIENT
  Age: 58 Year
  Sex: Female

DRUGS (1)
  1. HUMIRA [Suspect]
     Active Substance: ADALIMUMAB
     Indication: CROHN^S DISEASE
     Route: 058
     Dates: start: 20170501, end: 20171113

REACTIONS (7)
  - Pancreatitis [Unknown]
  - Cholelithiasis [Not Recovered/Not Resolved]
  - Immunodeficiency [Unknown]
  - Escherichia infection [Unknown]
  - Pneumonia [Recovered/Resolved]
  - Pulmonary mycosis [Unknown]
  - Liver disorder [Not Recovered/Not Resolved]

NARRATIVE: CASE EVENT DATE: 201708
